FAERS Safety Report 10255730 (Version 1)
Quarter: 2014Q2

REPORT INFORMATION
  Report Type: Spontaneous
  Country: CA (occurrence: CA)
  Receive Date: 20140624
  Receipt Date: 20140624
  Transmission Date: 20141212
  Serious: Yes (Other)
  Sender: FDA-Public Use
  Company Number: CA-TEVA-489981USA

PATIENT
  Age: 63 Year
  Sex: Female
  Weight: 73 kg

DRUGS (1)
  1. IRINOTECAN [Suspect]
     Indication: PRODUCT USED FOR UNKNOWN INDICATION
     Route: 042

REACTIONS (5)
  - Back pain [Recovered/Resolved]
  - Chest discomfort [Recovered/Resolved]
  - Dysphagia [Recovered/Resolved]
  - Hypoaesthesia oral [Recovered/Resolved]
  - Pharyngeal oedema [Recovered/Resolved]
